FAERS Safety Report 14993550 (Version 4)
Quarter: 2019Q2

REPORT INFORMATION
  Report Type: Spontaneous
  Country: FR (occurrence: FR)
  Receive Date: 20180611
  Receipt Date: 20190521
  Transmission Date: 20190711
  Serious: Yes (Life-Threatening, Other)
  Sender: FDA-Public Use
  Company Number: FR-AUROBINDO-AUR-APL-2018-030359

PATIENT

DRUGS (6)
  1. RANITIDINE. [Interacting]
     Active Substance: RANITIDINE
     Indication: PREMEDICATION
     Dosage: 300 MILLIGRAM
     Route: 048
  2. CAELYX [Interacting]
     Active Substance: DOXORUBICIN HYDROCHLORIDE
     Indication: CUTANEOUS T-CELL LYMPHOMA
     Dosage: 0.14 MILLIGRAM, PLD/MIN
     Route: 041
  3. PROPRANOLOL [Suspect]
     Active Substance: PROPRANOLOL HYDROCHLORIDE
     Indication: HEPATIC CIRRHOSIS
     Dosage: 40 MILLIGRAM, TWO TIMES A DAY
     Route: 065
  4. HYDROXYZINE [Suspect]
     Active Substance: HYDROXYZINE HYDROCHLORIDE
     Indication: PREMEDICATION
     Dosage: 50 MILLIGRAM
     Route: 065
  5. CAELYX [Interacting]
     Active Substance: DOXORUBICIN HYDROCHLORIDE
     Dosage: 0.28 MG OF PLD/MIN
     Route: 041
  6. METHYLPREDNISOLONE. [Interacting]
     Active Substance: METHYLPREDNISOLONE
     Indication: PREMEDICATION
     Dosage: 120 MILLIGRAM
     Route: 042

REACTIONS (9)
  - Product use issue [Unknown]
  - Drug interaction [Unknown]
  - Oxygen saturation decreased [Unknown]
  - Product use in unapproved indication [Unknown]
  - Hypersensitivity [Unknown]
  - Dyspnoea [Unknown]
  - Erythema [Unknown]
  - Chest discomfort [Unknown]
  - Off label use [Unknown]
